FAERS Safety Report 9709085 (Version 1)
Quarter: 2013Q4

REPORT INFORMATION
  Report Type: Spontaneous
  Country: JP (occurrence: JP)
  Receive Date: 20131125
  Receipt Date: 20131125
  Transmission Date: 20140711
  Serious: Yes (Other)
  Sender: FDA-Public Use
  Company Number: JP-MYLANLABS-2013S1025878

PATIENT
  Age: 58 Year
  Sex: Male

DRUGS (4)
  1. CISPLATIN [Suspect]
     Indication: SMALL CELL CARCINOMA
     Dosage: 140MG FOR 1 DAY ON DAYS 1, 22 AND 43
     Route: 065
  2. ETOPOSIDE [Suspect]
     Indication: SMALL CELL CARCINOMA
     Dosage: 170MG FOR 3 DAYS STARTING ON DAYS 1, 22 AND 43
     Route: 065
  3. ETOPOSIDE [Suspect]
     Indication: SMALL CELL CARCINOMA
     Dosage: 135MG FOR 3 DAYS STARTING ON DAY 64
     Route: 065
  4. CARBOPLATIN [Suspect]
     Indication: SMALL CELL CARCINOMA
     Dosage: 450MG FOR 1 DAY ON DAY 64
     Route: 065

REACTIONS (4)
  - Bone marrow toxicity [Unknown]
  - Mucosal inflammation [Unknown]
  - Febrile neutropenia [Unknown]
  - Renal impairment [Unknown]
